FAERS Safety Report 8112162-3 (Version None)
Quarter: 2012Q1

REPORT INFORMATION
  Report Type: 
  Country: None (occurrence: None)
  Receive Date: 20120131
  Receipt Date: 20120120
  Transmission Date: 20120608
  Serious: Yes (Hospitalization, Other)
  Sender: FDA-Public Use
  Company Number: 2010MA003233

PATIENT
  Age: 65 Year
  Sex: Female
  Weight: 88.4514 kg

DRUGS (29)
  1. XYLOCAINE [Concomitant]
  2. VIAGRA [Concomitant]
  3. CYMBALTA [Concomitant]
  4. COGENTIN [Concomitant]
  5. NEXIUM [Concomitant]
  6. PROTONIX [Concomitant]
  7. PLAVIX [Concomitant]
  8. CLONIDINE [Concomitant]
  9. AMBIEN [Concomitant]
  10. TEMAZEPAM [Concomitant]
  11. ATP [Concomitant]
  12. PSYLLIUM HUSK [Concomitant]
  13. LEVSIN [Concomitant]
  14. MOTRIN [Concomitant]
  15. ACIPHEX [Concomitant]
  16. MOBIC [Concomitant]
  17. LIBRAX [Concomitant]
  18. FISH OIL [Concomitant]
  19. METOCLOPRAMIDE [Suspect]
     Indication: GASTROOESOPHAGEAL REFLUX DISEASE
     Dosage: 10 MG;OD;PO
     Route: 048
     Dates: start: 20060829, end: 20090601
  20. CINNAMON [Concomitant]
  21. XANAX [Concomitant]
  22. EFFEXOR [Concomitant]
  23. LEXAPRO [Concomitant]
  24. NEURONTIN [Concomitant]
  25. TOPROL-XL [Concomitant]
  26. NORVASC [Concomitant]
  27. FIORICET [Concomitant]
  28. CASCARA SAGRADA [Concomitant]
  29. DIOVAN HCT [Concomitant]

REACTIONS (44)
  - EMOTIONAL DISORDER [None]
  - GLOSSODYNIA [None]
  - BURNING SENSATION [None]
  - BACK PAIN [None]
  - SYNCOPE [None]
  - GRIEF REACTION [None]
  - SPINAL OSTEOARTHRITIS [None]
  - TARDIVE DYSKINESIA [None]
  - EXTRAPYRAMIDAL DISORDER [None]
  - PAIN IN EXTREMITY [None]
  - DIZZINESS [None]
  - PRURITUS [None]
  - ECONOMIC PROBLEM [None]
  - INSOMNIA [None]
  - ASTHENIA [None]
  - CRYING [None]
  - OBESITY [None]
  - ARTERIOSCLEROSIS [None]
  - TREMOR [None]
  - TEMPERATURE INTOLERANCE [None]
  - SNORING [None]
  - LOSS OF CONSCIOUSNESS [None]
  - TONGUE DISORDER [None]
  - GASTRITIS [None]
  - PALPITATIONS [None]
  - HYPOVOLAEMIA [None]
  - FATIGUE [None]
  - PARAESTHESIA [None]
  - ABDOMINAL TENDERNESS [None]
  - STRESS [None]
  - CHRONIC FATIGUE SYNDROME [None]
  - GASTROOESOPHAGEAL REFLUX DISEASE [None]
  - SLEEP DISORDER [None]
  - INTERVERTEBRAL DISC DISORDER [None]
  - HEADACHE [None]
  - DEPRESSED MOOD [None]
  - INJURY [None]
  - APHTHOUS STOMATITIS [None]
  - HYPOAESTHESIA [None]
  - ARTHRALGIA [None]
  - MUSCLE SPASMS [None]
  - HAEMATOCHEZIA [None]
  - DYSKINESIA [None]
  - LYMPHADENOPATHY [None]
